FAERS Safety Report 18757251 (Version 5)
Quarter: 2021Q3

REPORT INFORMATION
  Report Type: Spontaneous
  Country: US (occurrence: US)
  Receive Date: 20210119
  Receipt Date: 20210809
  Transmission Date: 20211014
  Serious: No
  Sender: FDA-Public Use
  Company Number: NVSC2021US007356

PATIENT
  Age: 30 Year
  Sex: Female

DRUGS (2)
  1. COSENTYX [Suspect]
     Active Substance: SECUKINUMAB
     Indication: PRODUCT USED FOR UNKNOWN INDICATION
     Dosage: 300 MG (2 PENS 150MG)
     Route: 065
  2. COSENTYX [Suspect]
     Active Substance: SECUKINUMAB
     Dosage: UNK
     Route: 065

REACTIONS (5)
  - Incorrect dose administered [Unknown]
  - Psoriasis [Unknown]
  - Device breakage [Unknown]
  - Device occlusion [Unknown]
  - COVID-19 [Unknown]

NARRATIVE: CASE EVENT DATE: 20210202
